FAERS Safety Report 6407957-8 (Version None)
Quarter: 2009Q4

REPORT INFORMATION
  Report Type: 
  Country: None (occurrence: None)
  Receive Date: 20091013
  Receipt Date: 20090929
  Transmission Date: 20100525
  Serious: Yes (Other)
  Sender: FDA-Public Use
  Company Number: 2009275387

PATIENT
  Age: 23 Year
  Sex: Female
  Weight: 51 kg

DRUGS (1)
  1. FRAGMIN [Suspect]
     Indication: MESENTERIC VEIN THROMBOSIS
     Dosage: 10000 IU, 1X/DAY, SUBCUTANEOUS
     Route: 058
     Dates: start: 20090901, end: 20090901

REACTIONS (1)
  - HEPATIC ENZYME INCREASED [None]
